FAERS Safety Report 13199712 (Version 1)
Quarter: 2017Q1

REPORT INFORMATION
  Report Type: Spontaneous
  Country: DE (occurrence: DE)
  Receive Date: 20170208
  Receipt Date: 20170208
  Transmission Date: 20170428
  Serious: Yes (Hospitalization)
  Sender: FDA-Public Use
  Company Number: GXKR2017DE000973

PATIENT
  Age: 62 Year
  Sex: Male
  Weight: 104 kg

DRUGS (1)
  1. DOXYCYCLIN - 1 A PHARMA [Suspect]
     Active Substance: DOXYCYCLINE
     Indication: INFLAMMATION
     Dosage: 100 MG, TWICE DAILY
     Route: 048
     Dates: end: 201607

REACTIONS (5)
  - Dermatitis allergic [Recovering/Resolving]
  - Skin exfoliation [Not Recovered/Not Resolved]
  - Alopecia areata [Not Recovered/Not Resolved]
  - Erythema [Not Recovered/Not Resolved]
  - Eczema [Not Recovered/Not Resolved]

NARRATIVE: CASE EVENT DATE: 201607
